FAERS Safety Report 8228726-2 (Version None)
Quarter: 2012Q1

REPORT INFORMATION
  Report Type: 
  Country: None (occurrence: None)
  Receive Date: 20120322
  Receipt Date: 20120316
  Transmission Date: 20120608
  Serious: Yes (Hospitalization, Congenital Anomaly)
  Sender: FDA-Public Use
  Company Number: US-GLAXOSMITHKLINE-A0680295A

PATIENT
  Sex: Male

DRUGS (3)
  1. VITAMIN AND MINERAL PRENATAL SUPPLEMENT W/ FOLIC ACID CAP [Concomitant]
     Route: 064
  2. PAROXETINE HCL [Suspect]
     Indication: ANXIETY
     Dosage: 20MG PER DAY
     Route: 064
     Dates: start: 20040201, end: 20060201
  3. PAXIL [Suspect]
     Indication: DEPRESSION
     Dosage: 20MG PER DAY
     Route: 064
     Dates: start: 20040501, end: 20050401

REACTIONS (7)
  - PULMONARY ARTERY STENOSIS CONGENITAL [None]
  - ATRIAL SEPTAL DEFECT [None]
  - HYPOPLASTIC LEFT HEART SYNDROME [None]
  - PATENT DUCTUS ARTERIOSUS [None]
  - FOETAL EXPOSURE DURING PREGNANCY [None]
  - HYPOPLASTIC RIGHT HEART SYNDROME [None]
  - VENTRICULAR SEPTAL DEFECT [None]
